FAERS Safety Report 25909235 (Version 1)
Quarter: 2025Q4

REPORT INFORMATION
  Report Type: Spontaneous
  Country: CA (occurrence: CA)
  Receive Date: 20251011
  Receipt Date: 20251011
  Transmission Date: 20260118
  Serious: Yes (Other)
  Sender: CELLTRION
  Company Number: CA-CELLTRION INC.-2025CA036082

PATIENT

DRUGS (7)
  1. INFLIXIMAB [Suspect]
     Active Substance: INFLIXIMAB
     Indication: Rheumatoid arthritis
     Dosage: 300.0 MILLIGRAM
     Route: 042
  2. INFLIXIMAB [Suspect]
     Active Substance: INFLIXIMAB
     Dosage: 300.0 MILLIGRAM
     Route: 042
  3. INFLIXIMAB [Suspect]
     Active Substance: INFLIXIMAB
     Dosage: 300.0 MILLIGRAM
     Route: 042
  4. CELEBREX [Concomitant]
     Active Substance: CELECOXIB
     Dosage: 200.0 MILLIGRAM, 2 EVERY 1 DAY
  5. FOLIC ACID [Concomitant]
     Active Substance: FOLIC ACID
  6. LEFLUNOMIDE [Concomitant]
     Active Substance: LEFLUNOMIDE
  7. METHOTREXATE [Concomitant]
     Active Substance: METHOTREXATE
     Dosage: 15.0 MILLIGRAM, 1 EVERY 1 WEEK

REACTIONS (3)
  - Cervical spinal stenosis [Not Recovered/Not Resolved]
  - Hypertension [Not Recovered/Not Resolved]
  - Overdose [Unknown]
